FAERS Safety Report 20556207 (Version 4)
Quarter: 2022Q2

REPORT INFORMATION
  Report Type: Report from Study
  Country: BR (occurrence: BR)
  Receive Date: 20220305
  Receipt Date: 20220401
  Transmission Date: 20220721
  Serious: No
  Sender: FDA-Public Use
  Company Number: BR-JNJFOC-20220304659

PATIENT
  Age: 64 Year
  Sex: Male
  Weight: 75 kg

DRUGS (9)
  1. SIMPONI [Suspect]
     Active Substance: GOLIMUMAB
     Indication: Rheumatoid arthritis
     Dosage: STRENGTH:  50.00 MG / 0.50 ML
     Route: 058
  2. SIMPONI [Suspect]
     Active Substance: GOLIMUMAB
  3. PREGABALIN [Concomitant]
     Active Substance: PREGABALIN
  4. LOSARTAN [Concomitant]
     Active Substance: LOSARTAN
  5. PRELONE [Concomitant]
     Active Substance: PREDNISOLONE
  6. CALCIUM [Concomitant]
     Active Substance: CALCIUM
  7. STRONG HOKUPHAGEN [Concomitant]
  8. METHOTREXATE [Concomitant]
     Active Substance: METHOTREXATE
  9. CILOSTAZOL [Concomitant]
     Active Substance: CILOSTAZOL

REACTIONS (6)
  - Needle issue [Unknown]
  - Syringe issue [Unknown]
  - Accidental exposure to product [Unknown]
  - Inappropriate schedule of product administration [Unknown]
  - Product administered at inappropriate site [Unknown]
  - SARS-CoV-2 test positive [Unknown]

NARRATIVE: CASE EVENT DATE: 20220101
